FAERS Safety Report 9656736 (Version 1)
Quarter: 2013Q4

REPORT INFORMATION
  Report Type: Spontaneous
  Country: US (occurrence: None)
  Receive Date: 20131029
  Receipt Date: 20131029
  Transmission Date: 20140711
  Serious: Yes (Hospitalization)
  Sender: FDA-Public Use
  Company Number: None

PATIENT
  Age: 22 Year
  Sex: Male

DRUGS (1)
  1. BUPROPION [Suspect]
     Indication: SMOKING CESSATION THERAPY
     Route: 048
     Dates: start: 20130707, end: 20130729

REACTIONS (10)
  - Feeling abnormal [None]
  - Abdominal pain upper [None]
  - Chest pain [None]
  - Dizziness [None]
  - Convulsion [None]
  - Hypophagia [None]
  - Fall [None]
  - Head injury [None]
  - Memory impairment [None]
  - Drug hypersensitivity [None]
